FAERS Safety Report 22056984 (Version 2)
Quarter: 2023Q1

REPORT INFORMATION
  Report Type: Spontaneous
  Country: AM (occurrence: None)
  Receive Date: 20230303
  Receipt Date: 20230314
  Transmission Date: 20230418
  Serious: Yes (Other)
  Sender: FDA-Public Use
  Company Number: AM-ROCHE-3296848

PATIENT
  Age: 75 Year
  Sex: Male

DRUGS (3)
  1. TECENTRIQ [Suspect]
     Active Substance: ATEZOLIZUMAB
     Indication: Small cell lung cancer
     Route: 041
     Dates: start: 202110
  2. ETOPOSIDE [Suspect]
     Active Substance: ETOPOSIDE
     Indication: Small cell lung cancer
     Dosage: ON 1, 2, 3 DAYS
     Route: 042
     Dates: start: 202110
  3. CARBOPLATIN [Suspect]
     Active Substance: CARBOPLATIN
     Indication: Small cell lung cancer
     Route: 042
     Dates: start: 202110

REACTIONS (1)
  - Metastases to adrenals [Recovering/Resolving]

NARRATIVE: CASE EVENT DATE: 20211001
